FAERS Safety Report 6697129-4 (Version None)
Quarter: 2010Q2

REPORT INFORMATION
  Report Type: 
  Country: None (occurrence: None)
  Receive Date: 20100426
  Receipt Date: 20100416
  Transmission Date: 20101027
  Serious: Yes (Other)
  Sender: FDA-Public Use
  Company Number: JP-JNJFOC-20100404535

PATIENT
  Age: 20 Year

DRUGS (3)
  1. RISPERDAL [Suspect]
     Indication: SCHIZOPHRENIA
     Route: 048
  2. AKINETON [Concomitant]
     Route: 065
  3. YOKUKAN-SAN [Concomitant]
     Route: 048

REACTIONS (3)
  - DEPRESSION [None]
  - INITIAL INSOMNIA [None]
  - SOMNOLENCE [None]
